FAERS Safety Report 15657719 (Version 1)
Quarter: 2018Q4

REPORT INFORMATION
  Report Type: Spontaneous
  Country: FR (occurrence: FR)
  Receive Date: 20181126
  Receipt Date: 20181126
  Transmission Date: 20190205
  Serious: Yes (Hospitalization)
  Sender: FDA-Public Use
  Company Number: FR-BAXTER-2018BAX028627

PATIENT
  Age: 45 Year
  Sex: Female
  Weight: 71 kg

DRUGS (3)
  1. DOXORUBICIN ACCORD [Suspect]
     Active Substance: DOXORUBICIN HYDROCHLORIDE
     Indication: DEDIFFERENTIATED LIPOSARCOMA
     Route: 041
     Dates: start: 20181019, end: 20181019
  2. HOLOXAN 2000 MG, POUDRE POUR USAGE PARENT?RAL [Suspect]
     Active Substance: IFOSFAMIDE
     Indication: DEDIFFERENTIATED LIPOSARCOMA
     Route: 041
     Dates: start: 20181019, end: 20181019
  3. UROMITEXAN 5 G/50 ML, SOLUTION INJECTABLE POUR PERFUSION EN FLACON [Suspect]
     Active Substance: MESNA
     Indication: DEDIFFERENTIATED LIPOSARCOMA
     Route: 042
     Dates: start: 20181019, end: 20181019

REACTIONS (2)
  - Abnormal behaviour [Not Recovered/Not Resolved]
  - Mutism [Not Recovered/Not Resolved]

NARRATIVE: CASE EVENT DATE: 20181020
